FAERS Safety Report 8530496-5 (Version None)
Quarter: 2012Q3

REPORT INFORMATION
  Report Type: 
  Country: None (occurrence: None)
  Receive Date: 20120723
  Receipt Date: 20120717
  Transmission Date: 20120928
  Serious: Yes (Hospitalization)
  Sender: FDA-Public Use
  Company Number: US-BAYER-2012-072770

PATIENT
  Sex: Female

DRUGS (2)
  1. ALEVE (CAPLET) [Suspect]
     Route: 048
  2. HYPNOTICS AND SEDATIVES [Concomitant]

REACTIONS (2)
  - ANAEMIA [None]
  - GASTRIC HAEMORRHAGE [None]
